FAERS Safety Report 8906320 (Version 2)
Quarter: 2013Q1

REPORT INFORMATION
  Report Type: Spontaneous
  Country: US (occurrence: None)
  Receive Date: 20121107
  Receipt Date: 20121204
  Transmission Date: 20140127
  Serious: Yes (Other)
  Sender: FDA-Public Use
  Company Number: CIO12021296

PATIENT
  Sex: Female

DRUGS (1)
  1. CREST COMPLETE MULTI-BENEFIT EXTRA WHITENING WITH TARTAR PROTECTION [Suspect]
     Dosage: INTRAORAL

REACTIONS (2)
  - Convulsion [None]
  - Product tampering [None]
